FAERS Safety Report 13661471 (Version 1)
Quarter: 2017Q2

REPORT INFORMATION
  Report Type: Spontaneous
  Country: US (occurrence: US)
  Receive Date: 20170616
  Receipt Date: 20170616
  Transmission Date: 20170830
  Serious: No
  Sender: FDA-Public Use
  Company Number: US-US WORLDMEDS, LLC-USW201610-000680

PATIENT
  Age: 94 Year
  Sex: Male

DRUGS (19)
  1. PROAIR HFA 108 (90 BASE) MCG/ACT [Concomitant]
  2. MYOBLOC [Concomitant]
     Active Substance: RIMABOTULINUMTOXINB
  3. STALEVO [Concomitant]
     Active Substance: CARBIDOPA\ENTACAPONE\LEVODOPA
     Route: 048
  4. APOKYN [Suspect]
     Active Substance: APOMORPHINE HYDROCHLORIDE
     Indication: PARKINSON^S DISEASE
     Route: 058
     Dates: start: 20160831
  5. DEXILANT [Concomitant]
     Active Substance: DEXLANSOPRAZOLE
  6. ALFUZOSIN HCL ER [Concomitant]
  7. FLOMAX [Concomitant]
     Active Substance: TAMSULOSIN HYDROCHLORIDE
  8. GLIMEPIRIDE. [Concomitant]
     Active Substance: GLIMEPIRIDE
  9. NAMENDA [Concomitant]
     Active Substance: MEMANTINE HYDROCHLORIDE
  10. APOKYN [Suspect]
     Active Substance: APOMORPHINE HYDROCHLORIDE
     Dates: start: 20160610
  11. GABAPENTIN. [Concomitant]
     Active Substance: GABAPENTIN
  12. RYTARY [Concomitant]
     Active Substance: CARBIDOPA\LEVODOPA
  13. APOKYN [Suspect]
     Active Substance: APOMORPHINE HYDROCHLORIDE
  14. BRIMONIDINE TARTRATE. [Concomitant]
     Active Substance: BRIMONIDINE TARTRATE
  15. CARBIDOPA/ LEVODOPA ER [Concomitant]
  16. SINEMET [Concomitant]
     Active Substance: CARBIDOPA\LEVODOPA
  17. SINEMET [Concomitant]
     Active Substance: CARBIDOPA\LEVODOPA
  18. MECLIZINE HCL [Concomitant]
     Active Substance: MECLIZINE HYDROCHLORIDE
  19. ISOSORBIDE MONONITRATE. [Concomitant]
     Active Substance: ISOSORBIDE MONONITRATE

REACTIONS (2)
  - Dyspnoea [Recovered/Resolved]
  - Tremor [Recovered/Resolved]

NARRATIVE: CASE EVENT DATE: 20160921
